FAERS Safety Report 7830828-7 (Version None)
Quarter: 2011Q4

REPORT INFORMATION
  Report Type: 
  Country: None (occurrence: None)
  Receive Date: 20111021
  Receipt Date: 20110927
  Transmission Date: 20120403
  Serious: Yes (Hospitalization)
  Sender: FDA-Public Use
  Company Number: RO-VIIV HEALTHCARE LIMITED-B0755923A

PATIENT
  Sex: Female

DRUGS (19)
  1. ZIDOVUDINE [Suspect]
     Indication: HIV INFECTION
     Route: 065
  2. ATAZANAVIR [Suspect]
     Indication: HIV INFECTION
     Route: 065
  3. INDINIVIR SULFATE [Suspect]
     Indication: HIV INFECTION
     Route: 065
  4. EFAVIRENZ [Suspect]
     Indication: HIV INFECTION
     Route: 065
  5. CEFTRIAXON [Suspect]
     Indication: HIV INFECTION
     Route: 065
  6. CEFTRIAXONE [Concomitant]
     Indication: PNEUMONIA STREPTOCOCCAL
     Route: 065
  7. LAMIVUDINE [Suspect]
     Indication: HIV INFECTION
     Route: 065
  8. ENFUVIRTIDE [Suspect]
     Indication: HIV INFECTION
     Route: 065
  9. STAVUDINE [Suspect]
     Indication: HIV INFECTION
     Route: 065
  10. RALTEGRAVIR [Suspect]
     Indication: HIV INFECTION
     Route: 065
  11. EFAVIRENZ [Suspect]
     Route: 065
  12. AMPRENAVIR [Suspect]
     Indication: HIV INFECTION
     Route: 065
  13. NEVIRAPINE [Suspect]
     Indication: HIV INFECTION
     Route: 065
  14. SAQUINAVIR [Suspect]
     Indication: HIV INFECTION
     Route: 065
  15. RITONAVIR [Suspect]
     Indication: HIV INFECTION
     Route: 065
  16. EMTRICITABINE [Suspect]
     Indication: HIV INFECTION
     Route: 065
  17. DARUNAVIR ETHANOLATE [Suspect]
     Indication: HIV INFECTION
     Route: 065
  18. ABACAVIR [Suspect]
     Indication: HIV INFECTION
     Route: 065
  19. DIDANOSINE [Suspect]
     Indication: HIV INFECTION
     Route: 065

REACTIONS (22)
  - DRUG RESISTANCE [None]
  - CEREBRAL TOXOPLASMOSIS [None]
  - EPILEPSY [None]
  - EAR INFECTION [None]
  - QUADRIPARESIS [None]
  - MENINGITIS [None]
  - OESOPHAGEAL CANDIDIASIS [None]
  - POLYNEUROPATHY [None]
  - HEPATOTOXICITY [None]
  - VIITH NERVE PARALYSIS [None]
  - PNEUMONIA STREPTOCOCCAL [None]
  - NAUSEA [None]
  - MONOPLEGIA [None]
  - DIARRHOEA [None]
  - CD4 LYMPHOCYTES INCREASED [None]
  - IMMUNE RECONSTITUTION SYNDROME [None]
  - VIRAL LOAD INCREASED [None]
  - GASTROINTESTINAL DISORDER [None]
  - VOMITING [None]
  - TREATMENT FAILURE [None]
  - TREATMENT NONCOMPLIANCE [None]
  - SEPSIS [None]
